FAERS Safety Report 23280280 (Version 1)
Quarter: 2023Q4

REPORT INFORMATION
  Report Type: Spontaneous
  Country: US (occurrence: US)
  Receive Date: 20231210
  Receipt Date: 20231210
  Transmission Date: 20240110
  Serious: Yes (Hospitalization)
  Sender: FDA-Public Use
  Company Number: US-STRIDES ARCOLAB LIMITED-2023SP018280

PATIENT
  Age: 57 Year

DRUGS (4)
  1. PREDNISOLONE [Suspect]
     Active Substance: PREDNISOLONE
     Indication: Myasthenia gravis
     Dosage: 60 MILLIGRAM PER DAY
     Route: 065
  2. PREDNISOLONE [Suspect]
     Active Substance: PREDNISOLONE
     Dosage: 10 MILLIGRAM/DAY (DOSE TAPER OF PREDNISONE TO 10 MG DAILY)
     Route: 065
  3. PYRIDOSTIGMINE [Concomitant]
     Active Substance: PYRIDOSTIGMINE
     Indication: Myasthenia gravis
     Dosage: 30 MILLIGRAM, BID
     Route: 065
  4. HUMAN PLASMA [Concomitant]
     Active Substance: HUMAN PLASMA
     Indication: Myasthenia gravis
     Dosage: UNK, ONE VOLUME PLASMA EXCHANGE TWICE PER WEEK
     Route: 065

REACTIONS (2)
  - Delusion [Recovered/Resolved]
  - Substance-induced psychotic disorder [Recovered/Resolved]
